FAERS Safety Report 7291375-7 (Version None)
Quarter: 2011Q1

REPORT INFORMATION
  Report Type: 
  Country: None (occurrence: None)
  Receive Date: 20110214
  Receipt Date: 20110204
  Transmission Date: 20110831
  Serious: Yes (Hospitalization)
  Sender: FDA-Public Use
  Company Number: B0696954A

PATIENT
  Age: 68 Year
  Sex: Male

DRUGS (20)
  1. ETRAVIRINE [Concomitant]
     Dates: start: 20060319
  2. RALTEGRAVIR [Concomitant]
     Dates: start: 20070319
  3. ALBUTEROL [Concomitant]
     Dates: start: 20060804
  4. FAMOTIDINE [Concomitant]
     Dates: start: 20031107
  5. FUROSEMIDE [Concomitant]
     Dates: start: 20090722
  6. TAMSULOSIN [Concomitant]
     Dates: start: 20050201
  7. OXYCODONE [Concomitant]
     Dates: start: 20041020
  8. MARAVIROC [Suspect]
     Indication: HIV INFECTION
     Dosage: 150MG TWICE PER DAY
     Route: 048
     Dates: start: 20060202, end: 20060729
  9. ACYCLOVIR [Concomitant]
     Dates: start: 20020913
  10. SYNTHROID [Concomitant]
     Dates: start: 20000830
  11. KALETRA [Concomitant]
     Dates: start: 20060801
  12. PROMETHAZINE [Concomitant]
     Dates: start: 20050516
  13. SUDAFED 12 HOUR [Concomitant]
     Dates: start: 20060217
  14. DONEPEZIL HCL [Concomitant]
     Dates: start: 20100205
  15. MECLIZINE [Concomitant]
  16. FAMCICLOVIR [Concomitant]
     Dates: start: 20090203
  17. LACTIC ACID [Concomitant]
     Dates: start: 20071130
  18. NEURONTIN [Concomitant]
     Dates: start: 20071001
  19. AVODART [Concomitant]
     Dates: start: 20050601
  20. DOCUSATE [Concomitant]
     Dates: start: 20041101

REACTIONS (2)
  - PNEUMONIA [None]
  - DYSPHAGIA [None]
